FAERS Safety Report 5563154-X (Version None)
Quarter: 2007Q4

REPORT INFORMATION
  Report Type: 
  Country: None (occurrence: None)
  Receive Date: 20071217
  Receipt Date: 20071212
  Transmission Date: 20080405
  Serious: Yes (Disabling)
  Sender: FDA-Public Use
  Company Number: B0499365A

PATIENT
  Age: 47 Year
  Sex: Female

DRUGS (4)
  1. FLUTIDE [Suspect]
     Indication: ASTHMA
     Route: 055
     Dates: start: 20060701, end: 20071101
  2. SEREVENT [Concomitant]
     Route: 055
  3. CETIRIZINE HYDROCHLORIDE [Concomitant]
     Route: 048
  4. MEPTIN AIR [Concomitant]
     Route: 055

REACTIONS (1)
  - OSTEONECROSIS [None]
